FAERS Safety Report 6998048-6 (Version None)
Quarter: 2010Q3

REPORT INFORMATION
  Report Type: 
  Country: None (occurrence: None)
  Receive Date: 20100920
  Receipt Date: 20070723
  Transmission Date: 20110219
  Serious: Yes (Other)
  Sender: FDA-Public Use
  Company Number: US-ASTRAZENECA-2006UW21161

PATIENT
  Age: 12773 Day
  Sex: Male
  Weight: 103.6 kg

DRUGS (12)
  1. SEROQUEL [Suspect]
     Indication: SCHIZOPHRENIA
     Route: 048
     Dates: start: 20050314
  2. SEROQUEL [Suspect]
     Indication: DEPRESSION
     Route: 048
     Dates: start: 20050314
  3. ABILIFY [Concomitant]
     Dates: start: 20030101, end: 20040101
  4. ABILIFY [Concomitant]
     Dates: start: 20040614
  5. RISPERDAL [Concomitant]
     Dates: start: 20040101, end: 20050101
  6. RISPERDAL [Concomitant]
     Dates: start: 20050314
  7. PROTONIX [Concomitant]
     Route: 048
     Dates: start: 20050809
  8. ZOLOFT [Concomitant]
     Route: 048
     Dates: start: 20040614
  9. FLEXERIL [Concomitant]
     Route: 048
     Dates: start: 20050809
  10. PROZAC [Concomitant]
     Dates: start: 20060328
  11. ISONIAZID [Concomitant]
     Dates: start: 20060328
  12. LISINOPRIL [Concomitant]
     Dates: start: 20060328

REACTIONS (4)
  - DIABETES MELLITUS [None]
  - DIABETES MELLITUS INADEQUATE CONTROL [None]
  - HYPERGLYCAEMIA [None]
  - TYPE 2 DIABETES MELLITUS [None]
